FAERS Safety Report 15409861 (Version 1)
Quarter: 2018Q3

REPORT INFORMATION
  Report Type: Spontaneous
  Country: US (occurrence: US)
  Receive Date: 20180920
  Receipt Date: 20180920
  Transmission Date: 20181010
  Serious: No
  Sender: FDA-Public Use
  Company Number: US-BIOVERATIV-2018BV000634

PATIENT
  Age: 35 Year
  Sex: Male

DRUGS (1)
  1. ALPROLIX [Suspect]
     Active Substance: EFTRENONACOG ALFA
     Indication: FACTOR VIII DEFICIENCY
     Dosage: ABOUT 3300 IU, PER DOSE, 2 DOSES BEGINNING ABOUT TWO WEEKS AGO
     Route: 065

REACTIONS (4)
  - Drug ineffective [Unknown]
  - Malaise [Unknown]
  - Fatigue [Recovered/Resolved]
  - Nervousness [Not Recovered/Not Resolved]

NARRATIVE: CASE EVENT DATE: 201809
